FAERS Safety Report 21210533 (Version 2)
Quarter: 2022Q4

REPORT INFORMATION
  Report Type: Report from Study
  Country: US (occurrence: US)
  Receive Date: 20220815
  Receipt Date: 20221122
  Transmission Date: 20230113
  Serious: Yes (Other)
  Sender: FDA-Public Use
  Company Number: US-ABBVIE-22K-163-4393769-00

PATIENT
  Age: 48 Year
  Sex: Female

DRUGS (4)
  1. HUMIRA [Suspect]
     Active Substance: ADALIMUMAB
     Indication: Crohn^s disease
     Dosage: STRENGTH: 40 MILLIGRAM
     Route: 058
     Dates: start: 20211202
  2. HUMIRA [Suspect]
     Active Substance: ADALIMUMAB
     Dosage: DAY 1?STRENGTH: 40 MILLIGRAM
     Route: 058
     Dates: start: 20211104, end: 20211104
  3. HUMIRA [Suspect]
     Active Substance: ADALIMUMAB
     Dosage: DAY 15?STRENGTH: 40 MILLIGRAM
     Route: 058
     Dates: start: 20211119, end: 20211119
  4. HUMIRA [Suspect]
     Active Substance: ADALIMUMAB
     Dosage: STRENGTH: 40 MILLIGRAM
     Route: 058

REACTIONS (17)
  - Skin haemorrhage [Recovered/Resolved]
  - Depressed mood [Unknown]
  - Purulent discharge [Recovered/Resolved]
  - Fatigue [Not Recovered/Not Resolved]
  - Asthenia [Unknown]
  - Gastrointestinal sounds abnormal [Not Recovered/Not Resolved]
  - Flatulence [Unknown]
  - Abdominal distension [Recovering/Resolving]
  - Drug ineffective [Unknown]
  - Vertigo positional [Unknown]
  - Crohn^s disease [Recovering/Resolving]
  - Abdominal pain [Not Recovered/Not Resolved]
  - Diarrhoea [Not Recovered/Not Resolved]
  - Defaecation urgency [Unknown]
  - Arthralgia [Recovering/Resolving]
  - Nausea [Unknown]
  - Insomnia [Unknown]

NARRATIVE: CASE EVENT DATE: 20121201
